FAERS Safety Report 4636208-X (Version None)
Quarter: 2005Q2

REPORT INFORMATION
  Report Type: 
  Country: None (occurrence: None)
  Receive Date: 20050415
  Receipt Date: 20050330
  Transmission Date: 20051028
  Serious: Yes (Other)
  Sender: FDA-Public Use
  Company Number: PHBS2005JP04452

PATIENT
  Age: 2 Year
  Sex: Male

DRUGS (4)
  1. CARBAMAZEPINE [Suspect]
     Indication: FEBRILE CONVULSION
     Dosage: 75 MG/DAY
     Route: 048
  2. CARBAMAZEPINE [Suspect]
     Dosage: 100 MG/DAY
     Route: 048
  3. CARBAMAZEPINE [Suspect]
     Dosage: 75 MG/DAY
     Route: 048
  4. VALPROIC ACID [Concomitant]

REACTIONS (3)
  - FEBRILE CONVULSION [None]
  - NAIL DISORDER [None]
  - ONYCHOMADESIS [None]
